FAERS Safety Report 6480838-X (Version None)
Quarter: 2009Q4

REPORT INFORMATION
  Report Type: 
  Country: None (occurrence: None)
  Receive Date: 20091203
  Receipt Date: 20091120
  Transmission Date: 20100525
  Serious: Yes (Hospitalization, Other)
  Sender: FDA-Public Use
  Company Number: SPV1-2009-01980

PATIENT
  Age: 32 Year
  Sex: Female
  Weight: 100.7 kg

DRUGS (6)
  1. ADDERALL XR 10 [Suspect]
     Indication: ATTENTION DEFICIT/HYPERACTIVITY DISORDER
     Dosage: 30 MG, 1X/DAY: QD, ORAL
     Route: 048
     Dates: start: 20050101, end: 20081211
  2. ADDERALL XR 10 [Suspect]
     Indication: CHRONIC FATIGUE SYNDROME
     Dosage: 30 MG, 1X/DAY: QD, ORAL
     Route: 048
     Dates: start: 20050101, end: 20081211
  3. ADDERALL XR 10 [Suspect]
     Indication: ATTENTION DEFICIT/HYPERACTIVITY DISORDER
     Dosage: 30 MG, 1X/DAY: QD, ORAL
     Route: 048
     Dates: start: 20090201
  4. ADDERALL XR 10 [Suspect]
     Indication: CHRONIC FATIGUE SYNDROME
     Dosage: 30 MG, 1X/DAY: QD, ORAL
     Route: 048
     Dates: start: 20090201
  5. ADDERALL 10 [Suspect]
     Indication: ATTENTION DEFICIT/HYPERACTIVITY DISORDER
     Dosage: 1X/DAY: QD, ORAL
     Route: 048
     Dates: start: 20050801
  6. ADDERALL 10 [Suspect]
     Indication: CHRONIC FATIGUE SYNDROME
     Dosage: 1X/DAY: QD, ORAL
     Route: 048
     Dates: start: 20050801

REACTIONS (13)
  - ABDOMEN CRUSHING [None]
  - ABDOMINAL DISTENSION [None]
  - ACCIDENT [None]
  - ACCIDENT AT WORK [None]
  - BACK PAIN [None]
  - FACIAL PALSY [None]
  - GASTROINTESTINAL DISORDER [None]
  - GUN SHOT WOUND [None]
  - IMPAIRED WORK ABILITY [None]
  - NIGHTMARE [None]
  - OPEN WOUND [None]
  - POST-TRAUMATIC STRESS DISORDER [None]
  - SPINAL COLUMN INJURY [None]
